FAERS Safety Report 9468841 (Version 2)
Quarter: 2013Q3

REPORT INFORMATION
  Report Type: Spontaneous
  Country: US (occurrence: US)
  Receive Date: 20130821
  Receipt Date: 20130918
  Transmission Date: 20140515
  Serious: Yes (Other)
  Sender: FDA-Public Use
  Company Number: US-BAYER-2013-099938

PATIENT
  Age: 69 Year
  Sex: Female
  Weight: 101.13 kg

DRUGS (6)
  1. BAYER ADVANCED ASPIRIN EXTRA STRENGTH [Suspect]
     Indication: BACK PAIN
     Dosage: 2 DF, PRN
     Route: 048
     Dates: start: 2012
  2. LISINOPRIL [Concomitant]
  3. LASIX [Concomitant]
  4. INSULIN [Concomitant]
  5. VITAMIN D [Concomitant]
  6. VITAMIN C [Concomitant]

REACTIONS (3)
  - Blood pressure systolic increased [Recovered/Resolved]
  - Throat irritation [Recovered/Resolved]
  - Expired drug administered [None]
